FAERS Safety Report 23029843 (Version 1)
Quarter: 2023Q4

REPORT INFORMATION
  Report Type: Spontaneous
  Country: EG (occurrence: EG)
  Receive Date: 20231004
  Receipt Date: 20231004
  Transmission Date: 20240110
  Serious: Yes (Death)
  Sender: FDA-Public Use
  Company Number: EG-PFIZER INC-PV202300160482

PATIENT
  Age: 78 Year
  Sex: Female

DRUGS (3)
  1. IBRANCE [Suspect]
     Active Substance: PALBOCICLIB
     Indication: Breast cancer metastatic
     Dosage: 125 MG, CYCLIC (21 DAYS AND ONE WEEK REST)
     Route: 048
     Dates: start: 20230618
  2. FASLODEX [Concomitant]
     Active Substance: FULVESTRANT
     Dosage: UNK, CYCLIC (EVERY 28 DAYS FOR 3 MONTHS)
  3. XGEVA [Concomitant]
     Active Substance: DENOSUMAB
     Dosage: UNK, CYCLIC (ON SC SYRNINGE EVERY 28 DAYS)
     Route: 058

REACTIONS (1)
  - Death [Fatal]
